FAERS Safety Report 9796634 (Version 1)
Quarter: 2014Q1

REPORT INFORMATION
  Report Type: Spontaneous
  Country: FR (occurrence: FR)
  Receive Date: 20140103
  Receipt Date: 20140103
  Transmission Date: 20141002
  Serious: Yes (Hospitalization)
  Sender: FDA-Public Use
  Company Number: FR-PFIZER INC-2013369872

PATIENT
  Age: 46 Year
  Sex: Female

DRUGS (14)
  1. ARACYTINE [Suspect]
     Dosage: UNK
     Dates: start: 20131128
  2. METHOTREXATE SODIUM [Suspect]
     Dosage: UNK
     Dates: start: 20131025
  3. METHOTREXATE SODIUM [Suspect]
     Dosage: UNK
     Dates: start: 20131128
  4. TASIGNA [Suspect]
     Dosage: 400 MG, 2X/DAY
     Dates: start: 20131028
  5. SOLU-MEDROL [Concomitant]
     Dosage: 90 MG, DAILY
     Dates: start: 20131025
  6. VINCRISTINE [Concomitant]
     Dosage: 2 MG (ON D1, D8, D15 AND D22)
     Dates: start: 20131028
  7. DEXAMETHASONE [Concomitant]
     Dosage: 20 MG, (ON D1, D2, D8, D9, D15, D16, D22, D23)
  8. SPASFON [Concomitant]
     Dosage: 1 DF, 3X/DAY
  9. DUPHALAC [Concomitant]
     Dosage: 1 DF, 3X/DAY
  10. BACTRIM FORTE [Concomitant]
     Dosage: UNK
  11. LEDERFOLIN [Concomitant]
     Dosage: 1 DF, 3X/WEEK
  12. BISOPROLOL [Concomitant]
     Dosage: 0.5 DF, 1X/DAY (IN MORNING)
  13. LUTERAN [Concomitant]
     Dosage: 10 MG, DAILY
  14. LEXOMIL [Concomitant]
     Dosage: 1/4 - 1/4 - 1/2

REACTIONS (4)
  - Renal failure acute [Unknown]
  - Pain in extremity [Unknown]
  - Pyrexia [Unknown]
  - Encephalitis [Unknown]
